FAERS Safety Report 4996898-9 (Version None)
Quarter: 2006Q2

REPORT INFORMATION
  Report Type: 
  Country: None (occurrence: None)
  Receive Date: 20060509
  Receipt Date: 20060504
  Transmission Date: 20061013
  Serious: Yes (Hospitalization)
  Sender: FDA-Public Use
  Company Number: CA-GLAXOSMITHKLINE-A0604536A

PATIENT
  Age: 54 Year
  Sex: Male

DRUGS (1)
  1. COREG [Suspect]
     Route: 048

REACTIONS (2)
  - CHEST PAIN [None]
  - HEART RATE IRREGULAR [None]
